FAERS Safety Report 9220999 (Version 3)
Quarter: 2014Q2

REPORT INFORMATION
  Report Type: Report from Study
  Country: CA (occurrence: CA)
  Receive Date: 20130409
  Receipt Date: 20140514
  Transmission Date: 20141212
  Serious: Yes (Hospitalization)
  Sender: FDA-Public Use
  Company Number: CA-ROCHE-1204062

PATIENT
  Age: 41 Year
  Sex: Female
  Weight: 58.3 kg

DRUGS (7)
  1. TRASTUZUMAB [Suspect]
     Indication: HER-2 POSITIVE BREAST CANCER
     Dosage: LOADING DOSE AS PER PROTOCOL.
     Route: 042
     Dates: start: 20130219, end: 20130219
  2. TRASTUZUMAB [Suspect]
     Dosage: START DATE OF MAINTENANCE DOSE ESTIMATED AS PER FREQUENCY, LAST DOSE DATE AND PROTOCOL
     Route: 042
     Dates: start: 20130313
  3. PACLITAXEL [Suspect]
     Indication: PRODUCT USED FOR UNKNOWN INDICATION
     Route: 065
     Dates: start: 20130219
  4. GRAVOL [Concomitant]
     Route: 065
     Dates: start: 201207
  5. LORAZEPAM [Concomitant]
     Route: 065
     Dates: start: 20130128
  6. IMODIUM [Concomitant]
     Dosage: 2-4MG
     Route: 065
     Dates: start: 20130219
  7. PLACEBO [Suspect]
     Indication: BREAST CANCER
     Route: 042
     Dates: start: 20130219

REACTIONS (1)
  - Pneumonia [Recovered/Resolved]
